FAERS Safety Report 15282001 (Version 1)
Quarter: 2018Q3

REPORT INFORMATION
  Report Type: Spontaneous
  Country: DE (occurrence: DE)
  Receive Date: 20180815
  Receipt Date: 20180815
  Transmission Date: 20181010
  Serious: Yes (Congenital Anomaly)
  Sender: FDA-Public Use
  Company Number: DE-ANIPHARMA-2018-DE-000138

PATIENT
  Sex: Male
  Weight: .35 kg

DRUGS (9)
  1. PANTOPRAZOLE [Suspect]
     Active Substance: PANTOPRAZOLE
     Dosage: 40 MG/D, UNKNOWN
     Route: 050
  2. LAMOTRIGINE. [Suspect]
     Active Substance: LAMOTRIGINE
     Dosage: 100 MG/D/ 50 TO 100 MG/D
     Route: 050
     Dates: start: 20171209, end: 20180504
  3. DORZOLAMIDE [Concomitant]
     Active Substance: DORZOLAMIDE
     Route: 050
  4. CERGEM [Concomitant]
     Active Substance: GEMEPROST
     Route: 050
     Dates: start: 20180502, end: 20180503
  5. METOPROLOL SUCCINATE. [Suspect]
     Active Substance: METOPROLOL SUCCINATE
     Dosage: 190 MG/D/ INITIA 2 X 95MG/D, THEN DOSAGE DECREASE TO 2 X 47.5MG/D
     Route: 050
     Dates: start: 20171209, end: 20180504
  6. CANDESARTAN CILEXETIL. [Suspect]
     Active Substance: CANDESARTAN CILEXETIL
     Indication: HYPERTENSION
     Dosage: 32 MG/D, DAILY
     Route: 050
  7. NEPRESOL (DIHYDRALAZINE MESILATE) [Suspect]
     Active Substance: DIHYDRALAZINE MESYLATE
     Dosage: V
     Route: 050
     Dates: start: 20171209, end: 20180504
  8. TORASEMIDE [Concomitant]
     Active Substance: TORSEMIDE
     Route: 050
  9. MIFEGYNE [Concomitant]
     Active Substance: MIFEPRISTONE
     Route: 050
     Dates: start: 20180502, end: 20180503

REACTIONS (6)
  - Congenital muscle absence [Not Recovered/Not Resolved]
  - Joint contracture [Not Recovered/Not Resolved]
  - Single umbilical artery [Not Recovered/Not Resolved]
  - Congenital vas deferens absence [Not Recovered/Not Resolved]
  - Potter^s syndrome [Not Recovered/Not Resolved]
  - Pulmonary hypoplasia [Not Recovered/Not Resolved]
